FAERS Safety Report 8256748-4 (Version None)
Quarter: 2012Q2

REPORT INFORMATION
  Report Type: 
  Country: None (occurrence: None)
  Receive Date: 20120403
  Receipt Date: 20120329
  Transmission Date: 20120825
  Serious: Yes (Hospitalization, Other)
  Sender: FDA-Public Use
  Company Number: FR-PFIZER INC-2012074242

PATIENT
  Age: 57 Year
  Sex: Male

DRUGS (6)
  1. NORVIR [Concomitant]
     Indication: ACQUIRED IMMUNODEFICIENCY SYNDROME
     Dosage: UNK
     Dates: start: 20110701
  2. PREZISTA [Concomitant]
     Indication: ACQUIRED IMMUNODEFICIENCY SYNDROME
     Dosage: UNK
     Dates: start: 20110701
  3. MARAVIROC [Concomitant]
     Indication: ACQUIRED IMMUNODEFICIENCY SYNDROME
     Dosage: UNK
     Dates: start: 20110701
  4. RULID [Concomitant]
     Indication: LUNG DISORDER
     Dosage: UNK
  5. TRUVADA [Concomitant]
     Indication: ACQUIRED IMMUNODEFICIENCY SYNDROME
     Dosage: UNK
     Dates: start: 20110701
  6. LYRICA [Suspect]
     Indication: BACK PAIN
     Dosage: 75 MG, 1X/DAY
     Route: 048
     Dates: start: 20111201, end: 20120111

REACTIONS (4)
  - CONSTIPATION [None]
  - BLADDER DISORDER [None]
  - PROSTATOMEGALY [None]
  - URINARY RETENTION [None]
